FAERS Safety Report 7815562-1 (Version None)
Quarter: 2011Q4

REPORT INFORMATION
  Report Type: 
  Country: None (occurrence: None)
  Receive Date: 20111014
  Receipt Date: 20110930
  Transmission Date: 20120403
  Serious: Yes (Other)
  Sender: FDA-Public Use
  Company Number: GB-ROCHE-1001116

PATIENT
  Sex: Female

DRUGS (1)
  1. MYCOPHENOLATE MOFETIL (CELLCEPT) [Suspect]
     Indication: CONNECTIVE TISSUE DISORDER
     Route: 048

REACTIONS (3)
  - RETCHING [None]
  - PRODUCT TASTE ABNORMAL [None]
  - OFF LABEL USE [None]
